FAERS Safety Report 17871590 (Version 1)
Quarter: 2020Q2

REPORT INFORMATION
  Report Type: Spontaneous
  Country: US (occurrence: US)
  Receive Date: 20200608
  Receipt Date: 20200608
  Transmission Date: 20200714
  Serious: No
  Sender: FDA-Public Use
  Company Number: US-VERTEX PHARMACEUTICALS-2020-012275

PATIENT
  Sex: Female

DRUGS (1)
  1. SYMDEKO [Suspect]
     Active Substance: IVACAFTOR\TEZACAFTOR
     Indication: CYSTIC FIBROSIS
     Dosage: 1 YELLOW TAB100MG TEZACAFTOR/150MG IVACAFTOR AM; 1 BLUE TAB150MG IVACAFTOR PM
     Route: 048

REACTIONS (2)
  - Frequent bowel movements [Unknown]
  - Sinus disorder [Unknown]
